FAERS Safety Report 6937316-0 (Version None)
Quarter: 2010Q3

REPORT INFORMATION
  Report Type: 
  Country: None (occurrence: None)
  Receive Date: 20100823
  Receipt Date: 20100810
  Transmission Date: 20110219
  Serious: Yes (Other)
  Sender: FDA-Public Use
  Company Number: JP-WATSON-2010-11277

PATIENT

DRUGS (1)
  1. TOPIRAMATE [Suspect]
     Indication: MYOCLONIC EPILEPSY
     Dosage: UNK

REACTIONS (1)
  - CONVULSION [None]
